FAERS Safety Report 9248359 (Version 1)
Quarter: 2013Q1

REPORT INFORMATION
  Report Type: Spontaneous
  Country: US (occurrence: None)
  Receive Date: 20121113
  Receipt Date: 20121113
  Transmission Date: 20140127
  Serious: Yes (Other)
  Sender: FDA-Public Use
  Company Number: 2012BH03724

PATIENT
  Age: 47 Year
  Sex: Female
  Weight: 56.4 kg

DRUGS (6)
  1. KIOVIG [Suspect]
     Indication: IMMUNODEFICIENCY COMMON VARIABLE
     Route: 042
     Dates: start: 20111021, end: 20120113
  2. KIOVIG [Suspect]
     Indication: HYPOGAMMAGLOBULINAEMIA
     Route: 042
     Dates: start: 20111021, end: 20120113
  3. MOMETASONE FUROATE (MOMETASONE FUROATE) [Concomitant]
  4. ALPRAZOLAM (ALPRAZOLAM) [Concomitant]
  5. ACETAMINOPHEN (PARACETAMOL) [Concomitant]
  6. DIPHENHYDRAMINE (DIPHENHYDRAMINE) [Concomitant]

REACTIONS (6)
  - Jugular vein thrombosis [None]
  - Infusion site irritation [None]
  - Infusion site pain [None]
  - Pain in extremity [None]
  - Infusion site swelling [None]
  - Infusion site erythema [None]
